FAERS Safety Report 7191825-0 (Version None)
Quarter: 2010Q4

REPORT INFORMATION
  Report Type: 
  Country: None (occurrence: None)
  Receive Date: 20101223
  Receipt Date: 20101210
  Transmission Date: 20110411
  Serious: Yes (Other)
  Sender: FDA-Public Use
  Company Number: PHHY2010BE39796

PATIENT
  Sex: Female

DRUGS (3)
  1. ZOMETA [Suspect]
     Indication: BREAST CANCER
     Dosage: 4 MG,EVERY 4 WEEKS
     Dates: start: 20090101, end: 20090901
  2. ZOMETA [Suspect]
     Indication: METASTASES TO BONE
  3. ANTIBIOTICS [Concomitant]

REACTIONS (4)
  - OSTEONECROSIS OF JAW [None]
  - PAIN IN JAW [None]
  - SEQUESTRECTOMY [None]
  - TOOTH EXTRACTION [None]
